FAERS Safety Report 18298637 (Version 1)
Quarter: 2020Q3

REPORT INFORMATION
  Report Type: Spontaneous
  Country: DE (occurrence: DE)
  Receive Date: 20200922
  Receipt Date: 20200922
  Transmission Date: 20201103
  Serious: Yes (Hospitalization, Other)
  Sender: FDA-Public Use
  Company Number: DE-PFIZER INC-2020362325

PATIENT
  Age: 78 Year
  Sex: Male
  Weight: 72 kg

DRUGS (3)
  1. BISOPROLOL [Concomitant]
     Active Substance: BISOPROLOL
     Dosage: 2.5 MG, 1X/DAY, 2.5 MG, 1?0?0?0
  2. IBUPROFEN. [Suspect]
     Active Substance: IBUPROFEN
     Dosage: 2.4 G, DAILY
     Dates: start: 20191231
  3. TILIDIN [Concomitant]
     Active Substance: NALOXONE HYDROCHLORIDE\TILIDINE HYDROCHLORIDE
     Dosage: UNK, AS NEEDED

REACTIONS (8)
  - Dysphagia [Unknown]
  - Chronic kidney disease [Unknown]
  - Fatigue [Unknown]
  - Headache [Unknown]
  - Dehydration [Unknown]
  - Psychomotor retardation [Unknown]
  - Asthenia [Unknown]
  - Fluid intake reduced [Unknown]
